FAERS Safety Report 4945190-7 (Version None)
Quarter: 2006Q1

REPORT INFORMATION
  Report Type: 
  Country: None (occurrence: None)
  Receive Date: 20060316
  Receipt Date: 20060302
  Transmission Date: 20060701
  Serious: Yes (Hospitalization)
  Sender: FDA-Public Use
  Company Number: PHBS2006US03894

PATIENT
  Age: 36 Year
  Sex: Female

DRUGS (3)
  1. VALPROATE SODIUM [Concomitant]
     Indication: PARANOIA
  2. CLOZAPINE [Suspect]
     Indication: SCHIZOPHRENIA
     Dosage: 300 MG, QHS
     Route: 048
  3. CLOZAPINE [Suspect]
     Dosage: 25MG/DAY

REACTIONS (14)
  - CARDIAC TAMPONADE [None]
  - DERMATOMYOSITIS [None]
  - DYSPNOEA [None]
  - HYPOXIA [None]
  - LUNG CONSOLIDATION [None]
  - PARANOIA [None]
  - PERICARDIAL DRAINAGE [None]
  - PERICARDIAL EFFUSION [None]
  - PERICARDIAL EXCISION [None]
  - PERICARDITIS [None]
  - PLEURAL EFFUSION [None]
  - RASH MACULAR [None]
  - TACHYCARDIA [None]
  - TACHYPNOEA [None]
